FAERS Safety Report 7794698-8 (Version None)
Quarter: 2011Q4

REPORT INFORMATION
  Report Type: 
  Country: None (occurrence: None)
  Receive Date: 20111004
  Receipt Date: 20110927
  Transmission Date: 20120403
  Serious: Yes (Hospitalization)
  Sender: FDA-Public Use
  Company Number: GB-TEVA-302525ISR

PATIENT
  Age: 8 Decade
  Sex: Female

DRUGS (4)
  1. FLOXACILLIN SODIUM [Suspect]
     Indication: SEPSIS
     Dosage: 4 GRAM; DOSAGE FORM: INTRAVENOUS INFUSION
     Route: 042
  2. FLOXACILLIN SODIUM [Suspect]
     Dosage: 2000 MILLIGRAM;
     Route: 048
  3. CEFUROXIME [Suspect]
     Indication: SEPSIS
  4. ACETAMINOPHEN [Suspect]
     Indication: JOINT ARTHROPLASTY
     Dosage: DOSAGE FORM: UNSPECIFIED

REACTIONS (6)
  - ATRIAL FIBRILLATION [None]
  - HYPOKALAEMIA [None]
  - PYROGLUTAMATE INCREASED [None]
  - POSTOPERATIVE WOUND INFECTION [None]
  - METABOLIC ACIDOSIS [None]
  - SEPSIS [None]
